FAERS Safety Report 11616664 (Version 2)
Quarter: 2015Q4

REPORT INFORMATION
  Report Type: Spontaneous
  Country: US (occurrence: US)
  Receive Date: 20151009
  Receipt Date: 20151111
  Transmission Date: 20160304
  Serious: Yes (Death, Hospitalization, Other)
  Sender: FDA-Public Use
  Company Number: PHEH2015US019613

PATIENT
  Age: 79 Year
  Sex: Female
  Weight: 58.51 kg

DRUGS (33)
  1. MULTI VITAMIN [Concomitant]
     Active Substance: VITAMINS
     Indication: PRODUCT USED FOR UNKNOWN INDICATION
     Dosage: 1 DF, QD
     Route: 048
  2. FUROSEMIDE. [Concomitant]
     Active Substance: FUROSEMIDE
     Indication: PRODUCT USED FOR UNKNOWN INDICATION
     Dosage: 40 MG, QD
     Route: 048
  3. OMEPRAZOLE. [Concomitant]
     Active Substance: OMEPRAZOLE
     Indication: PRODUCT USED FOR UNKNOWN INDICATION
     Dosage: 20 MG, QD
     Route: 048
  4. TAXOL [Concomitant]
     Active Substance: PACLITAXEL
     Indication: BREAST CANCER METASTATIC
     Dosage: 80 MG/M2, WEEKLY
     Route: 065
     Dates: start: 20110606, end: 20110805
  5. ZYPREXA ZYDIS [Concomitant]
     Active Substance: OLANZAPINE
     Indication: PRODUCT USED FOR UNKNOWN INDICATION
     Dosage: 2.5 MG, BID PRN
     Route: 048
  6. SODIUM CHLORIDE. [Concomitant]
     Active Substance: SODIUM CHLORIDE
     Indication: PRODUCT USED FOR UNKNOWN INDICATION
     Route: 042
  7. METHENAMINE [Concomitant]
     Active Substance: METHENAMINE
     Indication: PRODUCT USED FOR UNKNOWN INDICATION
     Dosage: 1 G, BID
     Route: 048
  8. FASLODEX [Concomitant]
     Active Substance: FULVESTRANT
     Indication: BREAST CANCER METASTATIC
     Dosage: UNK
     Route: 065
     Dates: start: 201109
  9. FUROSEMIDE. [Concomitant]
     Active Substance: FUROSEMIDE
     Dosage: 40 MG, QD
     Route: 048
  10. ZOMETA [Suspect]
     Active Substance: ZOLEDRONIC ACID
     Indication: BREAST CANCER METASTATIC
     Route: 065
  11. VALSARTAN. [Concomitant]
     Active Substance: VALSARTAN
     Indication: PRODUCT USED FOR UNKNOWN INDICATION
     Dosage: 160 MG, QD
     Route: 048
  12. CODEINE [Concomitant]
     Active Substance: CODEINE
     Indication: PRODUCT USED FOR UNKNOWN INDICATION
     Route: 065
  13. TYLENOL [Concomitant]
     Active Substance: ACETAMINOPHEN
     Dosage: 650 MG, Q4H (PRN)
     Route: 048
     Dates: end: 20150925
  14. ZOFRAN [Concomitant]
     Active Substance: ONDANSETRON HYDROCHLORIDE
     Indication: PRODUCT USED FOR UNKNOWN INDICATION
     Dosage: 4 MG, Q6H PRN
     Route: 042
     Dates: end: 20150928
  15. DESYREL [Concomitant]
     Active Substance: TRAZODONE HYDROCHLORIDE
     Indication: PRODUCT USED FOR UNKNOWN INDICATION
     Dosage: 25 MG, NIGHTLY PRN
     Route: 048
     Dates: end: 20150927
  16. PALBOCICLIB [Suspect]
     Active Substance: PALBOCICLIB
     Indication: BREAST CANCER METASTATIC
     Dosage: 120 MG, QD
     Route: 048
     Dates: start: 20150901, end: 20150914
  17. BAZEDOXIFENE [Suspect]
     Active Substance: BAZEDOXIFENE
     Indication: BREAST CANCER METASTATIC
     Dosage: 40 MG, QD
     Route: 048
     Dates: start: 20150901, end: 20150914
  18. ERIBULIN [Concomitant]
     Active Substance: ERIBULIN
     Indication: PRODUCT USED FOR UNKNOWN INDICATION
     Dosage: 0.5 DF, UNK
     Route: 065
     Dates: start: 20150609
  19. COLACE [Concomitant]
     Active Substance: DOCUSATE SODIUM
     Indication: PRODUCT USED FOR UNKNOWN INDICATION
     Dosage: 100 MG, BID
     Route: 048
  20. ROBITESSIN [Concomitant]
     Indication: PRODUCT USED FOR UNKNOWN INDICATION
     Route: 065
  21. LASIX [Concomitant]
     Active Substance: FUROSEMIDE
     Indication: PRODUCT USED FOR UNKNOWN INDICATION
     Dosage: 40 MG, UNK
     Route: 065
  22. BAZEDOXIFENE [Suspect]
     Active Substance: BAZEDOXIFENE
     Dosage: 40 MG, QD
     Route: 065
     Dates: start: 20150922, end: 20150922
  23. POTASSIUM CHLORIDE. [Concomitant]
     Active Substance: POTASSIUM CHLORIDE
     Indication: PRODUCT USED FOR UNKNOWN INDICATION
     Dosage: 10 MG, QD
     Route: 048
  24. FUROSEMIDE. [Concomitant]
     Active Substance: FUROSEMIDE
     Dosage: 20 MG, QD
     Route: 048
  25. METOPROLOL [Concomitant]
     Active Substance: METOPROLOL
     Indication: PRODUCT USED FOR UNKNOWN INDICATION
     Dosage: 25 MG, QD
     Route: 048
  26. COLLAGENASE SANTYL [Concomitant]
     Active Substance: COLLAGENASE CLOSTRIDIUM HISTOLYTICUM
     Indication: PRODUCT USED FOR UNKNOWN INDICATION
     Dosage: UNK UNK, BID
     Route: 061
  27. FEMARA [Suspect]
     Active Substance: LETROZOLE
     Indication: BREAST CANCER METASTATIC
     Dosage: UNK
     Route: 065
  28. AMLODIPINE [Concomitant]
     Active Substance: AMLODIPINE BESYLATE
     Indication: PRODUCT USED FOR UNKNOWN INDICATION
     Dosage: 5 MG, QD
     Route: 048
  29. TYLENOL [Concomitant]
     Active Substance: ACETAMINOPHEN
     Indication: PRODUCT USED FOR UNKNOWN INDICATION
     Dosage: 350 MG, Q4H (PRN)
     Route: 048
  30. COMPAZINE [Concomitant]
     Active Substance: PROCHLORPERAZINE MALEATE
     Indication: PRODUCT USED FOR UNKNOWN INDICATION
     Dosage: 5 MG, Q6H PRN
     Route: 042
     Dates: end: 20150928
  31. SENOKOT [Concomitant]
     Active Substance: SENNOSIDES
     Indication: PRODUCT USED FOR UNKNOWN INDICATION
     Dosage: 2 DF, BID
     Route: 048
  32. ROCEPHIN [Concomitant]
     Active Substance: CEFTRIAXONE SODIUM
     Indication: VOMITING
     Dosage: 1 G, Q24H
     Route: 042
     Dates: end: 20150925
  33. ROCEPHIN [Concomitant]
     Active Substance: CEFTRIAXONE SODIUM
     Indication: ASPIRATION

REACTIONS (57)
  - White blood cell count decreased [Unknown]
  - Pancytopenia [Unknown]
  - Gastrointestinal infection [Not Recovered/Not Resolved]
  - Small intestinal obstruction [Unknown]
  - Clostridium difficile infection [Unknown]
  - Urinary tract infection [Not Recovered/Not Resolved]
  - Abdominal mass [Unknown]
  - Oral pain [Unknown]
  - Thrombocytopenia [Unknown]
  - Malignant neoplasm progression [Recovering/Resolving]
  - Death [Fatal]
  - Lymphadenopathy [Unknown]
  - Mass [Unknown]
  - Decreased appetite [Unknown]
  - Asthenia [Unknown]
  - Rectal haemorrhage [Unknown]
  - Cardiac failure congestive [Not Recovered/Not Resolved]
  - Proctalgia [Not Recovered/Not Resolved]
  - Liver disorder [Unknown]
  - Pyrexia [Unknown]
  - Pulmonary embolism [Unknown]
  - Metastases to liver [Unknown]
  - Bone lesion [Unknown]
  - Constipation [Unknown]
  - Diarrhoea [Unknown]
  - Dyspnoea [Unknown]
  - Glomerular filtration rate decreased [Unknown]
  - Tachypnoea [Unknown]
  - Confusional state [Unknown]
  - Feeding disorder [Unknown]
  - Vomiting [Unknown]
  - Ulcer [Unknown]
  - Neutrophil count decreased [Unknown]
  - Breast cancer [Unknown]
  - Fibromyalgia [Unknown]
  - Mental status changes [Not Recovered/Not Resolved]
  - Haemorrhoids [Unknown]
  - Dysuria [Unknown]
  - Anorectal discomfort [Unknown]
  - Acute kidney injury [Unknown]
  - Ascites [Unknown]
  - Breast cancer stage II [Unknown]
  - Metastases to bone [Unknown]
  - Gastroenteritis viral [Unknown]
  - Abdominal discomfort [Not Recovered/Not Resolved]
  - Peripheral venous disease [Unknown]
  - Malaise [Unknown]
  - Nausea [Unknown]
  - Oedema peripheral [Not Recovered/Not Resolved]
  - Dehydration [Unknown]
  - Febrile neutropenia [Not Recovered/Not Resolved]
  - Pulmonary embolism [Unknown]
  - Pneumonia aspiration [Unknown]
  - Abdominal distension [Unknown]
  - Depression [Unknown]
  - Fatigue [Not Recovered/Not Resolved]
  - Oedema [Unknown]

NARRATIVE: CASE EVENT DATE: 2007
